FAERS Safety Report 7691166-9 (Version None)
Quarter: 2011Q3

REPORT INFORMATION
  Report Type: 
  Country: None (occurrence: None)
  Receive Date: 20110815
  Receipt Date: 20110801
  Transmission Date: 20111222
  Serious: Yes (Life-Threatening, Disabling)
  Sender: FDA-Public Use
  Company Number: TUK2011A00110

PATIENT
  Age: 66 Year
  Sex: Male

DRUGS (8)
  1. BECLOMESTASONE (BECLOMETASONE) [Concomitant]
  2. RAMIPRIL [Concomitant]
  3. ACTOS [Suspect]
     Indication: PRODUCT USED FOR UNKNOWN INDICATION
  4. METFORMIN HCL [Concomitant]
  5. ACETAMINOPHEN [Concomitant]
  6. SIMVASTATIN [Concomitant]
  7. VOLUMATIC [Concomitant]
  8. ASPIRIN [Concomitant]

REACTIONS (3)
  - CARDIAC FAILURE ACUTE [None]
  - VENTRICULAR FIBRILLATION [None]
  - ACUTE LEFT VENTRICULAR FAILURE [None]
